FAERS Safety Report 23857172 (Version 2)
Quarter: 2024Q2

REPORT INFORMATION
  Report Type: Spontaneous
  Country: US (occurrence: US)
  Receive Date: 20240515
  Receipt Date: 20240517
  Transmission Date: 20240716
  Serious: No
  Sender: FDA-Public Use
  Company Number: US-ABBVIE-5759985

PATIENT
  Sex: Female

DRUGS (3)
  1. DEOXYCHOLIC ACID [Suspect]
     Active Substance: DEOXYCHOLIC ACID
     Indication: Fat tissue increased
     Dosage: TIME INTERVAL: AS NECESSARY
     Route: 058
  2. KYBELLA [Suspect]
     Active Substance: DEOXYCHOLIC ACID
     Indication: Fat tissue increased
     Dosage: TIME INTERVAL: AS NECESSARY
     Route: 058
     Dates: start: 20240512, end: 20240512
  3. KYBELLA [Suspect]
     Active Substance: DEOXYCHOLIC ACID
     Indication: Fat tissue increased
     Dosage: TIME INTERVAL: AS NECESSARY
     Route: 058
     Dates: start: 20240508, end: 20240508

REACTIONS (4)
  - Injection site irritation [Unknown]
  - Skin lesion [Unknown]
  - Contusion [Unknown]
  - Scab [Unknown]

NARRATIVE: CASE EVENT DATE: 20240501
